FAERS Safety Report 5523580-1 (Version None)
Quarter: 2007Q4

REPORT INFORMATION
  Report Type: 
  Country: None (occurrence: None)
  Receive Date: 20071121
  Receipt Date: 20071109
  Transmission Date: 20080405
  Serious: Yes (Other)
  Sender: FDA-Public Use
  Company Number: JP-SANOFI-SYNTHELABO-A01200712844

PATIENT
  Age: 83 Year
  Sex: Male

DRUGS (1)
  1. MYSLEE [Suspect]
     Route: 048
     Dates: start: 20070518, end: 20071026

REACTIONS (1)
  - DELIRIUM [None]
